FAERS Safety Report 22657032 (Version 1)
Quarter: 2023Q2

REPORT INFORMATION
  Report Type: Report from Study
  Country: US (occurrence: US)
  Receive Date: 20230630
  Receipt Date: 20230630
  Transmission Date: 20230721
  Serious: Yes (Other)
  Sender: FDA-Public Use
  Company Number: US-002147023-NVSC2023US148565

PATIENT
  Sex: Female

DRUGS (1)
  1. GLEEVEC [Suspect]
     Active Substance: IMATINIB MESYLATE
     Indication: Chronic myeloid leukaemia
     Dosage: UNK
     Route: 065
     Dates: start: 200112

REACTIONS (16)
  - Hypothyroidism [Unknown]
  - Eye haemorrhage [Unknown]
  - Migraine [Unknown]
  - Brain fog [Unknown]
  - Gastrointestinal pain [Unknown]
  - Tooth erosion [Unknown]
  - Muscle spasms [Unknown]
  - Red blood cell count decreased [Unknown]
  - White blood cell count decreased [Unknown]
  - Platelet count decreased [Unknown]
  - Nausea [Unknown]
  - Vomiting [Unknown]
  - Constipation [Unknown]
  - Alopecia [Unknown]
  - Fatigue [Unknown]
  - Rash [Unknown]
